FAERS Safety Report 12831957 (Version 1)
Quarter: 2016Q4

REPORT INFORMATION
  Report Type: Spontaneous
  Country: US (occurrence: US)
  Receive Date: 20161010
  Receipt Date: 20161010
  Transmission Date: 20170207
  Serious: No
  Sender: FDA-Public Use
  Company Number: US-STRIDES ARCOLAB LIMITED-2016SP011666

PATIENT

DRUGS (1)
  1. IMIQUIMOD. [Suspect]
     Active Substance: IMIQUIMOD
     Indication: LANGERHANS^ CELL HISTIOCYTOSIS
     Dosage: CREAM, BID, FIVE DAYS PER WEEK
     Route: 061

REACTIONS (3)
  - Application site haemorrhage [Unknown]
  - Skin irritation [Unknown]
  - Off label use [Unknown]
